FAERS Safety Report 6361622-4 (Version None)
Quarter: 2009Q3

REPORT INFORMATION
  Report Type: 
  Country: None (occurrence: None)
  Receive Date: 20090918
  Receipt Date: 20090911
  Transmission Date: 20100115
  Serious: Yes (Other)
  Sender: FDA-Public Use
  Company Number: PHHY2009BR39441

PATIENT
  Sex: Female
  Weight: 69 kg

DRUGS (1)
  1. VOLTAREN [Suspect]
     Indication: BONE PAIN
     Dosage: 50 MG, UNK
     Route: 048

REACTIONS (2)
  - FALL [None]
  - FRACTURED COCCYX [None]
